FAERS Safety Report 7153407-6 (Version None)
Quarter: 2010Q4

REPORT INFORMATION
  Report Type: 
  Country: None (occurrence: None)
  Receive Date: 20101213
  Receipt Date: 20101201
  Transmission Date: 20110411
  Serious: Yes (Other)
  Sender: FDA-Public Use
  Company Number: A0860403A

PATIENT
  Sex: Male

DRUGS (4)
  1. PAXIL CR [Suspect]
     Indication: DEPRESSION
     Dosage: 25MG AT NIGHT
     Route: 048
     Dates: start: 20050101, end: 20070501
  2. LUNESTA [Suspect]
     Route: 048
  3. AUGMENTIN [Suspect]
     Route: 048
     Dates: start: 20070427
  4. PREDNISONE [Suspect]
     Dates: start: 20070427

REACTIONS (3)
  - ADVERSE EVENT [None]
  - LOSS OF CONSCIOUSNESS [None]
  - ROAD TRAFFIC ACCIDENT [None]
